FAERS Safety Report 12832503 (Version 4)
Quarter: 2018Q3

REPORT INFORMATION
  Report Type: Spontaneous
  Country: US (occurrence: US)
  Receive Date: 20161010
  Receipt Date: 20180911
  Transmission Date: 20181010
  Serious: No
  Sender: FDA-Public Use
  Company Number: US-JAZZ-2016-US-012999

PATIENT
  Sex: Female

DRUGS (22)
  1. RANITIDINE. [Concomitant]
     Active Substance: RANITIDINE
  2. NUVIGIL [Concomitant]
     Active Substance: ARMODAFINIL
  3. LORATADINE. [Concomitant]
     Active Substance: LORATADINE
  4. ADVIL [Concomitant]
     Active Substance: IBUPROFEN
  5. XYREM [Suspect]
     Active Substance: SODIUM OXYBATE
     Indication: NARCOLEPSY
     Dosage: 2.25 G, BID
     Route: 048
     Dates: start: 201603, end: 201603
  6. XYREM [Suspect]
     Active Substance: SODIUM OXYBATE
     Dosage: 2.25G, BID
     Route: 048
     Dates: start: 201603, end: 2016
  7. CARDIZEM CD [Concomitant]
     Active Substance: DILTIAZEM HYDROCHLORIDE
  8. ADDERALL [Concomitant]
     Active Substance: AMPHETAMINE ASPARTATE\AMPHETAMINE SULFATE\DEXTROAMPHETAMINE SACCHARATE\DEXTROAMPHETAMINE SULFATE
  9. XYREM [Suspect]
     Active Substance: SODIUM OXYBATE
     Dosage: 3 G, BID
     Route: 048
     Dates: start: 201606
  10. TIZANIDINE HCL [Concomitant]
     Active Substance: TIZANIDINE HYDROCHLORIDE
  11. NASONEX [Concomitant]
     Active Substance: MOMETASONE FUROATE
  12. TRANSDERM SCOP [Concomitant]
     Active Substance: SCOPOLAMINE
  13. MEDROXYPROGESTERONE [Concomitant]
     Active Substance: MEDROXYPROGESTERONE
  14. NAPROXEN. [Concomitant]
     Active Substance: NAPROXEN
  15. METHYLPHENIDATE. [Concomitant]
     Active Substance: METHYLPHENIDATE
  16. ALAWAY [Concomitant]
     Active Substance: KETOTIFEN FUMARATE
  17. MUCINEX [Concomitant]
     Active Substance: GUAIFENESIN
  18. ASCORBIC ACID. [Concomitant]
     Active Substance: ASCORBIC ACID
  19. CITALOPRAM [Concomitant]
     Active Substance: CITALOPRAM HYDROBROMIDE
  20. MELOXICAM. [Concomitant]
     Active Substance: MELOXICAM
  21. DEXTROAMPHETAMINE PHOSPHATE [Concomitant]
  22. TYLENOL ARTHRITIS PAIN [Concomitant]
     Active Substance: ACETAMINOPHEN

REACTIONS (5)
  - Heart rate increased [Unknown]
  - Hypertension [Unknown]
  - Cyst [Unknown]
  - Flushing [Unknown]
  - Ligament sprain [Unknown]
